FAERS Safety Report 16450551 (Version 1)
Quarter: 2019Q2

REPORT INFORMATION
  Report Type: Spontaneous
  Country: US (occurrence: US)
  Receive Date: 20190619
  Receipt Date: 20190619
  Transmission Date: 20190711
  Serious: No
  Sender: FDA-Public Use
  Company Number: US-BAYER-2019-112049

PATIENT
  Age: 77 Year
  Sex: Male
  Weight: 119 kg

DRUGS (2)
  1. ALEVE [Suspect]
     Active Substance: NAPROXEN SODIUM
     Indication: PAIN
     Dosage: 4 DF, QD
     Route: 048
     Dates: end: 20190609
  2. ALEVE [Suspect]
     Active Substance: NAPROXEN SODIUM
     Indication: PAIN
     Dosage: 4 DF, QD
     Route: 048

REACTIONS (4)
  - Faeces discoloured [Unknown]
  - Faeces hard [Unknown]
  - Product use issue [Unknown]
  - Dizziness [Unknown]
